FAERS Safety Report 6693152-4 (Version None)
Quarter: 2010Q2

REPORT INFORMATION
  Report Type: 
  Country: None (occurrence: None)
  Receive Date: 20100422
  Receipt Date: 20100412
  Transmission Date: 20101027
  Serious: Yes (Other)
  Sender: FDA-Public Use
  Company Number: CH-ELI_LILLY_AND_COMPANY-CH201004000232

PATIENT
  Age: 63 Year
  Sex: Female

DRUGS (5)
  1. BYETTA [Suspect]
     Indication: TYPE 2 DIABETES MELLITUS
     Dosage: 10 UG, 2/D
     Route: 058
     Dates: start: 20080325, end: 20091218
  2. AMARYL [Concomitant]
     Indication: TYPE 2 DIABETES MELLITUS
     Dosage: 6 MG, DAILY (1/D)
     Route: 048
     Dates: start: 20060401
  3. GLUCOPHAGE [Concomitant]
     Indication: TYPE 2 DIABETES MELLITUS
     Dosage: 2000 MG, DAILY (1/D)
     Route: 048
     Dates: start: 20060401
  4. LANTUS [Concomitant]
     Indication: TYPE 2 DIABETES MELLITUS
     Dosage: 20 U, DAILY (1/D)
     Route: 058
     Dates: start: 20060401
  5. CO APROVEL [Concomitant]
     Indication: HYPERTENSION
     Dosage: 300/12.5, DAILY (1/D)
     Route: 048
     Dates: start: 20060401

REACTIONS (2)
  - OFF LABEL USE [None]
  - PANCREATIC CYST [None]
